FAERS Safety Report 15805708 (Version 1)
Quarter: 2019Q1

REPORT INFORMATION
  Report Type: Spontaneous
  Country: US (occurrence: US)
  Receive Date: 20190110
  Receipt Date: 20190110
  Transmission Date: 20190417
  Serious: Yes (Life-Threatening, Hospitalization, Other)
  Sender: FDA-Public Use
  Company Number: US-MACLEODS PHARMACEUTICALS US LTD-MAC2018019465

PATIENT

DRUGS (2)
  1. SERTRALINE [Suspect]
     Active Substance: SERTRALINE HYDROCHLORIDE
     Indication: BIPOLAR DISORDER
     Dosage: UNK
     Route: 065
  2. ZIPRASIDONE. [Suspect]
     Active Substance: ZIPRASIDONE
     Indication: BIPOLAR DISORDER
     Dosage: UNK
     Route: 065

REACTIONS (5)
  - Hypokalaemia [Recovered/Resolved]
  - Blood creatine phosphokinase increased [Recovered/Resolved]
  - Ventricular tachycardia [Recovered/Resolved]
  - Serotonin syndrome [Recovered/Resolved]
  - Hypotension [Recovered/Resolved]
